FAERS Safety Report 4897763-8 (Version None)
Quarter: 2006Q1

REPORT INFORMATION
  Report Type: 
  Country: None (occurrence: None)
  Receive Date: 20060130
  Receipt Date: 20060130
  Transmission Date: 20060701
  Serious: Yes (Other)
  Sender: FDA-Public Use
  Company Number: None

PATIENT
  Age: 13 Year
  Sex: Female
  Weight: 57.6068 kg

DRUGS (1)
  1. CIPRO [Suspect]
     Indication: SINUSITIS
     Dosage: 1 BID PO
     Route: 048
     Dates: start: 20060113, end: 20060115

REACTIONS (9)
  - ABASIA [None]
  - ACTIVITIES OF DAILY LIVING IMPAIRED [None]
  - ARTHRALGIA [None]
  - HEADACHE [None]
  - MYALGIA [None]
  - PARAESTHESIA [None]
  - PERIPHERAL COLDNESS [None]
  - SERUM SICKNESS [None]
  - SKIN DISCOLOURATION [None]
